FAERS Safety Report 9896852 (Version 1)
Quarter: 2014Q1

REPORT INFORMATION
  Report Type: Spontaneous
  Country: DE (occurrence: DE)
  Receive Date: 20140214
  Receipt Date: 20140214
  Transmission Date: 20141002
  Serious: Yes (Hospitalization)
  Sender: FDA-Public Use
  Company Number: DE-009507513-1402DEU005434

PATIENT
  Age: 72 Year
  Sex: Male
  Weight: 85 kg

DRUGS (7)
  1. VELMETIA [Suspect]
     Indication: DIABETES MELLITUS
     Dosage: UNK
     Route: 048
     Dates: start: 20140127, end: 20140207
  2. METOPROLOL [Concomitant]
     Dosage: 47.5MG
  3. TORSEMIDE [Concomitant]
     Dosage: 10MG
  4. SPIRONOLACTONE [Concomitant]
     Dosage: 50MG
  5. ENALAPRIL MALEATE [Concomitant]
     Dosage: 10MG
     Route: 048
  6. SIMVASTATIN [Concomitant]
     Dosage: 20MG
     Route: 048
  7. ASPIRIN [Concomitant]
     Dosage: 100 MG

REACTIONS (3)
  - Angina pectoris [Recovered/Resolved]
  - Chest pain [Recovered/Resolved]
  - Dyspnoea [Recovered/Resolved]
